FAERS Safety Report 22109108 (Version 1)
Quarter: 2023Q1

REPORT INFORMATION
  Report Type: Spontaneous
  Country: US (occurrence: None)
  Receive Date: 20230316
  Receipt Date: 20230316
  Transmission Date: 20230418
  Serious: Yes (Life-Threatening, Hospitalization)
  Sender: FDA-Public Use
  Company Number: None

PATIENT
  Sex: Male
  Weight: 134.1 kg

DRUGS (1)
  1. METFORMIN [Suspect]
     Active Substance: METFORMIN HYDROCHLORIDE

REACTIONS (6)
  - Lactic acidosis [None]
  - Cardiac arrest [None]
  - Ischaemic hepatitis [None]
  - Haemofiltration [None]
  - Blood potassium increased [None]
  - Blood creatinine abnormal [None]

NARRATIVE: CASE EVENT DATE: 20230310
